FAERS Safety Report 15790713 (Version 1)
Quarter: 2019Q1

REPORT INFORMATION
  Report Type: Spontaneous
  Country: TR (occurrence: TR)
  Receive Date: 20190104
  Receipt Date: 20190104
  Transmission Date: 20190417
  Serious: Yes (Hospitalization)
  Sender: FDA-Public Use
  Company Number: TR-MYLANLABS-2018M1098239

PATIENT
  Age: 38 Year
  Sex: Female

DRUGS (10)
  1. VALPROIC ACID. [Suspect]
     Active Substance: VALPROIC ACID
     Indication: BIPOLAR I DISORDER
     Dosage: 1000 MILLIGRAM, QD
     Route: 065
  2. ZUCLOPENTHIXOL [Concomitant]
     Active Substance: ZUCLOPENTHIXOL
     Dosage: DEPOT OCCASIONALLY USED
     Route: 065
  3. QUETIAPINE. [Interacting]
     Active Substance: QUETIAPINE
     Dosage: 300 MILLIGRAM, QD
     Route: 065
  4. OXCARBAZEPINE. [Interacting]
     Active Substance: OXCARBAZEPINE
     Dosage: 600 MILLIGRAM, QD
     Route: 065
  5. QUETIAPINE. [Interacting]
     Active Substance: QUETIAPINE
     Indication: BIPOLAR I DISORDER
     Dosage: 900 MILLIGRAM, QD
     Route: 065
  6. OLANZAPINE. [Interacting]
     Active Substance: OLANZAPINE
     Indication: BIPOLAR I DISORDER
     Dosage: 40 MILLIGRAM, QD
     Route: 065
  7. OXCARBAZEPINE. [Interacting]
     Active Substance: OXCARBAZEPINE
     Indication: BIPOLAR I DISORDER
     Dosage: 800 MILLIGRAM, QD
     Route: 065
  8. OLANZAPINE. [Interacting]
     Active Substance: OLANZAPINE
     Dosage: 30 MILLIGRAM, QD
     Route: 065
  9. LORAZEPAM. [Concomitant]
     Active Substance: LORAZEPAM
     Dosage: OCCASIONALLY USED
     Route: 065
  10. HALOPERIDOL. [Concomitant]
     Active Substance: HALOPERIDOL
     Dosage: OCCASIONALLY USED
     Route: 065

REACTIONS (2)
  - Hyperammonaemic encephalopathy [Recovered/Resolved]
  - Drug interaction [Recovered/Resolved]
